FAERS Safety Report 7805383 (Version 3)
Quarter: 2012Q4

REPORT INFORMATION
  Report Type: 
  Country: JP (occurrence: US)
  Receive Date: 20110209
  Receipt Date: 20121213
  Transmission Date: 20130627
  Serious: Yes (Other)
  Sender: FDA-Public Use
  Company Number: US-JNJFOC-20100805092

PATIENT
  Sex: Female

DRUGS (1)
  1. LEVOFLOXACIN [Suspect]
     Indication: NEPHROLITHIASIS
     Route: 048
     Dates: start: 20050207, end: 20050217

REACTIONS (7)
  - Tendon rupture [Recovering/Resolving]
  - Plantar fasciitis [Unknown]
  - Rotator cuff syndrome [Recovering/Resolving]
  - Epicondylitis [Unknown]
  - Tenosynovitis [Unknown]
  - Tendon rupture [Unknown]
  - Tendonitis [Unknown]
